FAERS Safety Report 8054661-9 (Version None)
Quarter: 2012Q1

REPORT INFORMATION
  Report Type: 
  Country: None (occurrence: None)
  Receive Date: 20120119
  Receipt Date: 20120112
  Transmission Date: 20120608
  Serious: No
  Sender: FDA-Public Use
  Company Number: US-PFIZER INC-2012002002

PATIENT
  Sex: Male
  Weight: 80.3 kg

DRUGS (4)
  1. LYRICA [Suspect]
     Indication: HERPES ZOSTER
     Dosage: 150 MG, 2X/DAY
     Route: 048
     Dates: start: 20111230
  2. LYRICA [Suspect]
     Indication: OEDEMA PERIPHERAL
  3. LYRICA [Suspect]
     Indication: NEURALGIA
  4. DILAUDID [Concomitant]
     Indication: MYALGIA
     Dosage: 2 MG, AS NEEDED

REACTIONS (1)
  - GAIT DISTURBANCE [None]
